FAERS Safety Report 17347672 (Version 1)
Quarter: 2020Q1

REPORT INFORMATION
  Report Type: Spontaneous
  Country: TR (occurrence: TR)
  Receive Date: 20200130
  Receipt Date: 20200130
  Transmission Date: 20200409
  Serious: Yes (Hospitalization, Other)
  Sender: FDA-Public Use
  Company Number: TR-GLAXOSMITHKLINE-TR2020TRK013549

PATIENT
  Age: 17 Year
  Sex: Female

DRUGS (2)
  1. LAMICTAL [Suspect]
     Active Substance: LAMOTRIGINE
     Indication: BIPOLAR DISORDER
     Dosage: UNK
  2. LAMICTAL [Suspect]
     Active Substance: LAMOTRIGINE
     Indication: ADJUSTMENT DISORDER

REACTIONS (7)
  - Lip injury [Unknown]
  - Product use issue [Unknown]
  - Blindness [Unknown]
  - Contusion [Unknown]
  - Stevens-Johnson syndrome [Unknown]
  - Off label use [Unknown]
  - Skin burning sensation [Unknown]
